FAERS Safety Report 20558126 (Version 3)
Quarter: 2022Q2

REPORT INFORMATION
  Report Type: Report from Study
  Country: US (occurrence: US)
  Receive Date: 20220307
  Receipt Date: 20220425
  Transmission Date: 20220720
  Serious: Yes (Other)
  Sender: FDA-Public Use
  Company Number: US-UCBSA-2022006633

PATIENT
  Age: 24 Year
  Sex: Female

DRUGS (1)
  1. CERTOLIZUMAB PEGOL [Suspect]
     Active Substance: CERTOLIZUMAB PEGOL
     Indication: Psoriasis
     Dosage: 400 MILLIGRAM, EV 2 WEEKS(QOW)
     Route: 058
     Dates: start: 20020202, end: 20220216

REACTIONS (12)
  - Loss of consciousness [Recovering/Resolving]
  - Pustular psoriasis [Not Recovered/Not Resolved]
  - Swelling [Recovering/Resolving]
  - Dizziness [Recovering/Resolving]
  - Cyanosis [Recovering/Resolving]
  - Acne [Recovering/Resolving]
  - Dyspnoea [Recovering/Resolving]
  - Incorrect dose administered [Unknown]
  - Ear infection [Recovering/Resolving]
  - Weight decreased [Recovering/Resolving]
  - Maternal exposure during breast feeding [Unknown]
  - Therapeutic product effect incomplete [Unknown]

NARRATIVE: CASE EVENT DATE: 20220201
